FAERS Safety Report 9283936 (Version 1)
Quarter: 2013Q2

REPORT INFORMATION
  Report Type: Spontaneous
  Country: US (occurrence: US)
  Receive Date: 20130510
  Receipt Date: 20130510
  Transmission Date: 20140414
  Serious: No
  Sender: FDA-Public Use
  Company Number: US-COVIDIEN/TYCO HEALTHCARE/MALLINCKRODT-T201301567

PATIENT
  Age: 85 Year
  Sex: Male
  Weight: 46.26 kg

DRUGS (10)
  1. FENTANYL TRANSDERMAL SYSTEM [Suspect]
     Indication: PAIN
     Dosage: 25 UG/HR, Q 72 HRS
     Route: 062
     Dates: start: 201302
  2. NORCO [Concomitant]
     Indication: BREAKTHROUGH PAIN
     Dosage: 10/325 MG, BID
     Route: 048
  3. NORCO [Concomitant]
     Dosage: 10/325 MG, QID
     Route: 048
  4. FLOMAX                             /00889901/ [Concomitant]
     Indication: PROSTATOMEGALY
     Dosage: UNK
  5. TESTOSTERONE [Concomitant]
     Indication: BLOOD TESTOSTERONE DECREASED
     Dosage: UNK
  6. WELLBUTRIN XL [Concomitant]
     Indication: ANTIDEPRESSANT THERAPY
     Dosage: 150 MG QAM
  7. SAM-E [Concomitant]
     Indication: ANTIDEPRESSANT THERAPY
     Dosage: 1 TAB QHS
  8. VALIUM                             /00017001/ [Concomitant]
     Indication: ANXIETY
     Dosage: 2.5 MG
  9. CIALIS [Concomitant]
     Indication: ERECTILE DYSFUNCTION
     Dosage: UNK
  10. FENTANYL [Concomitant]
     Dosage: 12 MCG/HR

REACTIONS (3)
  - Pain [Not Recovered/Not Resolved]
  - Anxiety [Not Recovered/Not Resolved]
  - Drug effect decreased [Not Recovered/Not Resolved]
